FAERS Safety Report 12628237 (Version 1)
Quarter: 2016Q3

REPORT INFORMATION
  Report Type: Spontaneous
  Country: US (occurrence: US)
  Receive Date: 20160808
  Receipt Date: 20160808
  Transmission Date: 20161109
  Serious: No
  Sender: FDA-Public Use
  Company Number: US-BEH-2016072038

PATIENT
  Sex: Female
  Weight: 79.37 kg

DRUGS (25)
  1. CYMBALTA [Concomitant]
     Active Substance: DULOXETINE HYDROCHLORIDE
  2. LORAZEPAM. [Concomitant]
     Active Substance: LORAZEPAM
  3. ASPIRIN. [Concomitant]
     Active Substance: ASPIRIN
  4. EPIPEN [Concomitant]
     Active Substance: EPINEPHRINE
  5. HIZENTRA [Suspect]
     Active Substance: HUMAN IMMUNOGLOBULIN G
     Dosage: UNK
     Route: 058
  6. HIZENTRA [Suspect]
     Active Substance: HUMAN IMMUNOGLOBULIN G
     Dosage: UNK
     Route: 058
  7. FOSAMAX [Concomitant]
     Active Substance: ALENDRONATE SODIUM
  8. CELEBREX [Concomitant]
     Active Substance: CELECOXIB
  9. SIMVASTATIN. [Concomitant]
     Active Substance: SIMVASTATIN
  10. XOLAIR [Concomitant]
     Active Substance: OMALIZUMAB
  11. PANTOPRAZOLE [Concomitant]
     Active Substance: PANTOPRAZOLE SODIUM
  12. ALPRAZOLAM. [Concomitant]
     Active Substance: ALPRAZOLAM
  13. OXYCODONE/APAP                     /00867901/ [Concomitant]
     Active Substance: ACETAMINOPHEN\OXYCODONE HYDROCHLORIDE
  14. ROPINIROLE. [Concomitant]
     Active Substance: ROPINIROLE
  15. HIZENTRA [Suspect]
     Active Substance: HUMAN IMMUNOGLOBULIN G
     Indication: IMMUNODEFICIENCY COMMON VARIABLE
     Dosage: 12 G, QW
     Route: 058
     Dates: start: 20150929
  16. ADVAIR HFA [Concomitant]
     Active Substance: FLUTICASONE PROPIONATE\SALMETEROL XINAFOATE
  17. DIPHENHYDRAMINE. [Concomitant]
     Active Substance: DIPHENHYDRAMINE
  18. OPANA [Concomitant]
     Active Substance: OXYMORPHONE HYDROCHLORIDE
  19. IPRATROPIUM [Concomitant]
     Active Substance: IPRATROPIUM
  20. ACETAMINOPHEN. [Concomitant]
     Active Substance: ACETAMINOPHEN
  21. AMBIEN [Concomitant]
     Active Substance: ZOLPIDEM TARTRATE
  22. PROVENTIL [Concomitant]
     Active Substance: ALBUTEROL
  23. TRAZODONE [Concomitant]
     Active Substance: TRAZODONE HYDROCHLORIDE
  24. OXYGEN. [Concomitant]
     Active Substance: OXYGEN
  25. NORTRIPTYLINE [Concomitant]
     Active Substance: NORTRIPTYLINE

REACTIONS (1)
  - Upper respiratory tract infection [Unknown]
